FAERS Safety Report 13042344 (Version 1)
Quarter: 2016Q4

REPORT INFORMATION
  Report Type: Spontaneous
  Country: DE (occurrence: DE)
  Receive Date: 20161219
  Receipt Date: 20161219
  Transmission Date: 20170207
  Serious: Yes (Other)
  Sender: FDA-Public Use
  Company Number: DE-UCBSA-2016043975

PATIENT
  Age: 80 Year
  Sex: Female

DRUGS (3)
  1. NEUPRO [Suspect]
     Active Substance: ROTIGOTINE
     Indication: RESTLESS LEGS SYNDROME
     Dosage: REST OF THE 1MG/24H PATCH WAS USED DURING 2 WEEKS IN A DOSE OF TWICE A DAY
  2. NEUPRO [Suspect]
     Active Substance: ROTIGOTINE
     Dosage: DOSE INCREASED TO : 2MG/24H, 2 MG, ONCE DAILY (QD)
     Route: 062
     Dates: start: 20161121
  3. NEUPRO [Suspect]
     Active Substance: ROTIGOTINE
     Indication: PARKINSON^S DISEASE
     Dosage: DOSE: 1MG/24H
     Route: 062

REACTIONS (3)
  - Restless legs syndrome [Recovered/Resolved]
  - Drug ineffective [Unknown]
  - Off label use [Unknown]

NARRATIVE: CASE EVENT DATE: 201611
